FAERS Safety Report 25273982 (Version 1)
Quarter: 2025Q2

REPORT INFORMATION
  Report Type: Spontaneous
  Country: US (occurrence: None)
  Receive Date: 20250506
  Receipt Date: 20250506
  Transmission Date: 20250717
  Serious: Yes (Hospitalization)
  Sender: FDA-CTU
  Company Number: None

PATIENT
  Age: 77 Year
  Sex: Female
  Weight: 73.44 kg

DRUGS (2)
  1. MITOMYCIN C [Suspect]
     Active Substance: MITOMYCIN
     Indication: Anal cancer
     Route: 042
     Dates: start: 20250310, end: 20250407
  2. CAPECITABINE [Suspect]
     Active Substance: CAPECITABINE
     Indication: Anal cancer
     Dosage: FREQUENCY : TWICE A DAY;?
     Route: 048
     Dates: start: 20250310, end: 20250416

REACTIONS (13)
  - Malaise [None]
  - Pleuritic pain [None]
  - Hypophagia [None]
  - Dysuria [None]
  - Mucous stools [None]
  - Epistaxis [None]
  - Blood pressure systolic increased [None]
  - Haemoglobin decreased [None]
  - Troponin increased [None]
  - Pulmonary embolism [None]
  - Angiogram pulmonary abnormal [None]
  - Terminal ileitis [None]
  - Lacunar infarction [None]

NARRATIVE: CASE EVENT DATE: 20250502
